FAERS Safety Report 9714011 (Version 1)
Quarter: 2013Q4

REPORT INFORMATION
  Report Type: Spontaneous
  Country: US (occurrence: US)
  Receive Date: 20131126
  Receipt Date: 20131126
  Transmission Date: 20140711
  Serious: No
  Sender: FDA-Public Use
  Company Number: US-GILEAD-2008-0018557

PATIENT
  Sex: Male
  Weight: 92.99 kg

DRUGS (11)
  1. LETAIRIS [Suspect]
     Indication: PULMONARY ARTERIAL HYPERTENSION
     Route: 048
     Dates: start: 20080525, end: 20081004
  2. CARDIZEM [Concomitant]
  3. LANOXIN [Concomitant]
  4. ALDACTONE [Concomitant]
  5. LASIX [Concomitant]
  6. PROVENTIL MDI [Concomitant]
  7. COUMADIN [Concomitant]
  8. SPIRIVA HANDIHALER [Concomitant]
  9. ADVAIR DISKUS 250-50 [Concomitant]
  10. MAGNESIUM OXIDE [Concomitant]
  11. FERROUS SULFATE [Concomitant]

REACTIONS (2)
  - Nervousness [None]
  - Tremor [None]
